FAERS Safety Report 18455264 (Version 7)
Quarter: 2021Q3

REPORT INFORMATION
  Report Type: Report from Study
  Country: CO (occurrence: CO)
  Receive Date: 20201102
  Receipt Date: 20210917
  Transmission Date: 20211014
  Serious: Yes (Other)
  Sender: FDA-Public Use
  Company Number: CO-TAKEDA-CO202019165

PATIENT
  Age: 78 Year
  Sex: Male
  Weight: 69 kg

DRUGS (16)
  1. ICATIBANT [Suspect]
     Active Substance: ICATIBANT ACETATE
     Dosage: 30 MG/3 ML, EVERY 6 HOURS, MAX 3 DOSES WITHIN 24 HOURS
     Route: 058
     Dates: start: 2019
  2. ICATIBANT [Suspect]
     Active Substance: ICATIBANT ACETATE
     Dosage: 30MG/3ML, EVERY 6 HRS UP TO 3 IN 24 HRS
     Route: 058
     Dates: start: 2019
  3. EMPAGLIFLOZIN [Concomitant]
     Active Substance: EMPAGLIFLOZIN
     Dosage: UNKNOWN
     Route: 065
  4. ICATIBANT [Suspect]
     Active Substance: ICATIBANT ACETATE
     Indication: HEREDITARY ANGIOEDEMA
     Dosage: 30MG/ML, AS REQ^D (IN CASE OF ANGIOEDEMA EPISODE, EVERY 6 HOURS. MAXIMUM OF 3 WITHIN 24 HOURS)
     Route: 058
     Dates: start: 2019
  5. ICATIBANT [Suspect]
     Active Substance: ICATIBANT ACETATE
     Dosage: 30MG/3ML
     Route: 058
     Dates: start: 2019
  6. ICATIBANT [Suspect]
     Active Substance: ICATIBANT ACETATE
     Dosage: 30MG/3ML
     Route: 058
     Dates: start: 2019
  7. ICATIBANT [Suspect]
     Active Substance: ICATIBANT ACETATE
     Dosage: 30MG/3ML, EVERY 6 HRS UP TO 3 IN 24 HRS
     Route: 058
     Dates: start: 2019
  8. ICATIBANT [Suspect]
     Active Substance: ICATIBANT ACETATE
     Dosage: UNK UNK, PRN
     Route: 058
     Dates: start: 2019
  9. METFORMIN [Concomitant]
     Active Substance: METFORMIN HYDROCHLORIDE
     Indication: TYPE 2 DIABETES MELLITUS
     Dosage: UNKNOWN
     Route: 065
  10. ICATIBANT [Suspect]
     Active Substance: ICATIBANT ACETATE
     Dosage: UNK UNK, PRN
     Route: 058
     Dates: start: 2019
  11. ICATIBANT [Suspect]
     Active Substance: ICATIBANT ACETATE
     Dosage: 30 MG/ 3 ML, PRN
     Route: 058
     Dates: start: 2019
  12. ICATIBANT [Suspect]
     Active Substance: ICATIBANT ACETATE
     Dosage: 30 MG/ 3 ML, PRN
     Route: 058
     Dates: start: 2019
  13. ICATIBANT [Suspect]
     Active Substance: ICATIBANT ACETATE
     Indication: HEREDITARY ANGIOEDEMA
     Dosage: 30MG/ML, AS REQ^D (IN CASE OF ANGIOEDEMA EPISODE, EVERY 6 HOURS. MAXIMUM OF 3 WITHIN 24 HOURS)
     Route: 058
     Dates: start: 2019
  14. ICATIBANT [Suspect]
     Active Substance: ICATIBANT ACETATE
     Dosage: 30 MG/3 ML, EVERY 6 HOURS, MAX 3 DOSES WITHIN 24 HOURS
     Route: 058
     Dates: start: 2019
  15. VILDAGLIPTIN [Concomitant]
     Active Substance: VILDAGLIPTIN
     Indication: TYPE 2 DIABETES MELLITUS
     Dosage: UNKNOWN
     Route: 065
  16. GEMFIBROZIL. [Concomitant]
     Active Substance: GEMFIBROZIL
     Dosage: UNKNOWN
     Route: 065

REACTIONS (5)
  - Hypothyroidism [Unknown]
  - Chronic obstructive pulmonary disease [Recovering/Resolving]
  - Type 2 diabetes mellitus [Unknown]
  - Weight decreased [Recovered/Resolved]
  - Expired product administered [Recovered/Resolved]

NARRATIVE: CASE EVENT DATE: 20200423
